FAERS Safety Report 6492046-7 (Version None)
Quarter: 2009Q4

REPORT INFORMATION
  Report Type: 
  Country: None (occurrence: None)
  Receive Date: 20091125
  Receipt Date: 20090325
  Transmission Date: 20100525
  Serious: Yes (Other)
  Sender: FDA-Public Use
  Company Number: 2009BH004754

PATIENT
  Age: 53 Year
  Sex: Female

DRUGS (15)
  1. DIANEAL [Suspect]
     Indication: PERITONEAL DIALYSIS
     Dosage: 10 L; EVERY DAY; IP
     Route: 033
     Dates: start: 20060101
  2. DIANEAL PD-2 W/ DEXTROSE 1.5% [Suspect]
     Indication: PERITONEAL DIALYSIS
     Dosage: 2 L; EVERY DAY; IP
     Route: 033
     Dates: start: 20060101
  3. VITAMINS [Concomitant]
  4. PHOSLO [Concomitant]
  5. NEURONTIN [Concomitant]
  6. SENSIPAR [Concomitant]
  7. SIMVASTATIN [Concomitant]
  8. ZEMPLAR [Concomitant]
  9. PREVACID [Concomitant]
  10. AMBIEN [Concomitant]
  11. ASPIRIN [Concomitant]
  12. EPOGEN [Concomitant]
  13. FOSRENOL [Concomitant]
  14. HEPARIN [Concomitant]
  15. INSULIN [Concomitant]

REACTIONS (3)
  - FLUID RETENTION [None]
  - PERITONEAL DIALYSIS COMPLICATION [None]
  - PERITONITIS BACTERIAL [None]
